FAERS Safety Report 15690773 (Version 1)
Quarter: 2018Q4

REPORT INFORMATION
  Report Type: Spontaneous
  Country: US (occurrence: US)
  Receive Date: 20181205
  Receipt Date: 20181205
  Transmission Date: 20190205
  Serious: No
  Sender: FDA-Public Use
  Company Number: US-THERAVANCE-2018-000047

PATIENT
  Age: 59 Year
  Sex: Male

DRUGS (1)
  1. VIBATIV [Suspect]
     Active Substance: TELAVANCIN HYDROCHLORIDE
     Indication: DIABETIC FOOT INFECTION
     Dosage: UNK
     Route: 042
     Dates: start: 2018, end: 2018

REACTIONS (1)
  - Epistaxis [Unknown]

NARRATIVE: CASE EVENT DATE: 2018
